FAERS Safety Report 16268720 (Version 1)
Quarter: 2019Q2

REPORT INFORMATION
  Report Type: Report from Study
  Country: CA (occurrence: CA)
  Receive Date: 20190503
  Receipt Date: 20190503
  Transmission Date: 20190711
  Serious: Yes (Hospitalization)
  Sender: FDA-Public Use
  Company Number: CA-EISAI MEDICAL RESEARCH-EC-2017-032755

PATIENT
  Age: 88 Year
  Sex: Female

DRUGS (11)
  1. OXAZEPAM. [Concomitant]
     Active Substance: OXAZEPAM
  2. VITAMIN B [Concomitant]
     Active Substance: VITAMIN B
  3. LENVIMA [Suspect]
     Active Substance: LENVATINIB
     Indication: POORLY DIFFERENTIATED THYROID CARCINOMA
     Route: 048
     Dates: start: 20171030
  4. MAGNESIUM [Concomitant]
     Active Substance: MAGNESIUM
  5. LENVIMA [Suspect]
     Active Substance: LENVATINIB
     Route: 048
  6. ATACAND [Concomitant]
     Active Substance: CANDESARTAN CILEXETIL
  7. TYLENOL ES PRN [Concomitant]
  8. CELEBREX PRN [Concomitant]
  9. VITAMIN D2 [Concomitant]
     Active Substance: ERGOCALCIFEROL
  10. ADALAT [Concomitant]
     Active Substance: NIFEDIPINE
  11. LYRICA [Concomitant]
     Active Substance: PREGABALIN

REACTIONS (4)
  - Dyspnoea [Unknown]
  - Fatigue [Unknown]
  - Headache [Unknown]
  - Blood pressure increased [Unknown]

NARRATIVE: CASE EVENT DATE: 20171031
